FAERS Safety Report 5613098-X (Version None)
Quarter: 2008Q1

REPORT INFORMATION
  Report Type: 
  Country: None (occurrence: None)
  Receive Date: 20080129
  Receipt Date: 20080114
  Transmission Date: 20080703
  Serious: Yes (Death)
  Sender: FDA-Public Use
  Company Number: 2008S1000025

PATIENT
  Age: 51 Year
  Sex: Male

DRUGS (4)
  1. DURACLON [Suspect]
     Dosage: PO
     Route: 048
     Dates: end: 20060101
  2. AMITRIPTYLINE HCL [Suspect]
     Dosage: PO
     Route: 048
     Dates: end: 20060101
  3. METOPROLOL TARTRATE [Suspect]
     Dosage: PO
     Route: 048
     Dates: end: 20060101
  4. MINOXIDIL [Suspect]
     Dosage: PO
     Route: 048
     Dates: end: 20060101

REACTIONS (1)
  - DEATH [None]
